FAERS Safety Report 10340224 (Version 1)
Quarter: 2014Q3

REPORT INFORMATION
  Report Type: Spontaneous
  Country: US (occurrence: US)
  Receive Date: 20140724
  Receipt Date: 20140724
  Transmission Date: 20150326
  Serious: No
  Sender: FDA-Public Use
  Company Number: US-BAYER-2014-093529

PATIENT
  Age: 93 Year
  Sex: Female

DRUGS (2)
  1. CIPRO [Suspect]
     Active Substance: CIPROFLOXACIN HYDROCHLORIDE
     Indication: URINARY TRACT INFECTION
     Dosage: 5 GM/100ML, 2 TEASPOONS EVERY DAY FOR 5 DAYS
  2. CIPRO [Suspect]
     Active Substance: CIPROFLOXACIN HYDROCHLORIDE
     Indication: URINARY TRACT INFECTION
     Dosage: 250MG/5ML, 2 TEASPOONS EVERY DAY FOR 5 DAYS

REACTIONS (3)
  - Product quality issue [None]
  - Nausea [None]
  - Regurgitation [None]

NARRATIVE: CASE EVENT DATE: 20140617
